FAERS Safety Report 14423958 (Version 5)
Quarter: 2018Q2

REPORT INFORMATION
  Report Type: Report from Study
  Country: CN (occurrence: CN)
  Receive Date: 20180123
  Receipt Date: 20180620
  Transmission Date: 20180711
  Serious: Yes (Hospitalization)
  Sender: FDA-Public Use
  Company Number: CN-ASTELLAS-2015JP025223AA

PATIENT
  Age: 69 Year
  Sex: Male
  Weight: 100 kg

DRUGS (7)
  1. ZOLADEX [Concomitant]
     Active Substance: GOSERELIN ACETATE
     Indication: PROSTATE CANCER
     Dosage: 10.8 MG, EVERY 3 MONTHS
     Route: 058
     Dates: start: 20091224
  2. ENZALUTAMIDE [Suspect]
     Active Substance: ENZALUTAMIDE
     Indication: HORMONE-REFRACTORY PROSTATE CANCER
     Route: 048
     Dates: start: 20141202, end: 20180416
  3. MONTELUKAST SODIUM. [Concomitant]
     Active Substance: MONTELUKAST SODIUM
     Indication: PNEUMONIA
     Route: 048
     Dates: start: 20151215, end: 20151222
  4. LANSOPRAZOLE. [Concomitant]
     Active Substance: LANSOPRAZOLE
     Indication: GASTROOESOPHAGEAL REFLUX DISEASE
     Route: 042
     Dates: start: 20171228, end: 20171229
  5. DIHYDROCODEINE W/PARACETAMOL [Concomitant]
     Indication: PNEUMONIA
     Route: 048
     Dates: start: 20151217, end: 20151222
  6. CEFTIZOXIME [Concomitant]
     Active Substance: CEFTIZOXIME
     Indication: PNEUMONIA
     Route: 042
     Dates: start: 20151215, end: 20151222
  7. AMBROXOL [Concomitant]
     Active Substance: AMBROXOL
     Indication: PNEUMONIA
     Route: 042
     Dates: start: 20151215, end: 20151222

REACTIONS (3)
  - Arteriosclerosis coronary artery [Not Recovered/Not Resolved]
  - Pneumonia [Recovered/Resolved]
  - Haematuria [Recovered/Resolved]

NARRATIVE: CASE EVENT DATE: 20151215
